FAERS Safety Report 9468724 (Version 1)
Quarter: 2013Q3

REPORT INFORMATION
  Report Type: Spontaneous
  Country: US (occurrence: US)
  Receive Date: 20130821
  Receipt Date: 20130821
  Transmission Date: 20140515
  Serious: Yes (Other)
  Sender: FDA-Public Use
  Company Number: US-BAYER-2013-100500

PATIENT
  Age: 13 Year
  Sex: Female
  Weight: 51.8 kg

DRUGS (3)
  1. YAZ [Suspect]
     Dosage: UNK
  2. MIRCETTE [Concomitant]
  3. ACCUTANE [Concomitant]

REACTIONS (2)
  - Deep vein thrombosis [None]
  - Deep vein thrombosis [None]
